FAERS Safety Report 4842550-X (Version None)
Quarter: 2005Q4

REPORT INFORMATION
  Report Type: 
  Country: None (occurrence: None)
  Receive Date: 20051201
  Receipt Date: 20051122
  Transmission Date: 20060501
  Serious: Yes (Hospitalization, Other)
  Sender: FDA-Public Use
  Company Number: US-JNJFOC-20051105806

PATIENT
  Sex: Female

DRUGS (2)
  1. ORTHO EVRA [Suspect]
     Indication: PAIN
     Route: 062
  2. ORTHO EVRA [Suspect]
     Indication: ENDOMETRIOSIS
     Dosage: NO PATCH-FREE WEEKS
     Route: 062

REACTIONS (3)
  - INTENTIONAL DRUG MISUSE [None]
  - JUGULAR VEIN THROMBOSIS [None]
  - TACHYCARDIA [None]
